FAERS Safety Report 5285663-3 (Version None)
Quarter: 2007Q1

REPORT INFORMATION
  Report Type: 
  Country: None (occurrence: None)
  Receive Date: 20070126
  Receipt Date: 20061220
  Transmission Date: 20070707
  Serious: No
  Sender: FDA-Public Use
  Company Number: 012621

PATIENT
  Age: 65 Year
  Sex: Female

DRUGS (5)
  1. PRIALT [Suspect]
     Indication: NEUROPATHY
     Dosage: SEE IMAGE
     Route: 037
     Dates: start: 20061001, end: 20061030
  2. PRIALT [Suspect]
     Indication: NEUROPATHY
     Dosage: SEE IMAGE
     Route: 037
     Dates: start: 20060101, end: 20061201
  3. PRIALT [Suspect]
     Indication: NEUROPATHY
     Dosage: SEE IMAGE
     Route: 037
     Dates: start: 20061030, end: 20061201
  4. PROZAC [Concomitant]
  5. MORPHINE [Concomitant]

REACTIONS (10)
  - ABASIA [None]
  - ANXIETY [None]
  - CONFUSIONAL STATE [None]
  - IRRITABILITY [None]
  - MEMORY IMPAIRMENT [None]
  - NAUSEA [None]
  - OEDEMA PERIPHERAL [None]
  - PAIN [None]
  - PARANOIA [None]
  - VISION BLURRED [None]
